FAERS Safety Report 10088123 (Version 1)
Quarter: 2014Q2

REPORT INFORMATION
  Report Type: Spontaneous
  Country: MX (occurrence: MX)
  Receive Date: 20140421
  Receipt Date: 20140421
  Transmission Date: 20141212
  Serious: Yes (Other)
  Sender: FDA-Public Use
  Company Number: MX-ROCHE-1385374

PATIENT
  Age: 93 Year
  Sex: Female

DRUGS (1)
  1. RIVOTRIL [Suspect]
     Indication: INSOMNIA
     Dosage: 1/4 OF TABLET (DOSEGE REGIMEN UNKNOWN)
     Route: 048

REACTIONS (1)
  - Cerebrovascular accident [Unknown]
